FAERS Safety Report 9056757 (Version 2)
Quarter: 2013Q2

REPORT INFORMATION
  Report Type: Spontaneous
  Country: US (occurrence: US)
  Receive Date: 20130201
  Receipt Date: 20130528
  Transmission Date: 20140414
  Serious: Yes (Hospitalization)
  Sender: FDA-Public Use
  Company Number: US-ELI_LILLY_AND_COMPANY-US201202005150

PATIENT
  Age: 55 Year
  Sex: Female

DRUGS (22)
  1. FORTEO [Suspect]
     Indication: OSTEOPOROSIS
     Dosage: 20 UG, QD
     Dates: start: 20120210
  2. FORTEO [Suspect]
     Dosage: 20 UG, QD
  3. FORTEO [Suspect]
     Dosage: 20 UG, QD
     Dates: start: 20120210
  4. LYRICA [Concomitant]
     Dosage: 10 MG, BID
  5. CYMBALTA [Concomitant]
     Dosage: 60 MG, QD
  6. PROTONIX [Concomitant]
     Dosage: 40 MG, QD
  7. AMBIEN [Concomitant]
     Dosage: 10 MG, EACH EVENING
  8. WARFARIN [Concomitant]
     Dosage: 5 MG, QD
  9. FOLIC ACID [Concomitant]
     Dosage: 1 MG, QD
  10. LIDODERM [Concomitant]
     Dosage: UNK, PRN
  11. ASPIRIN [Concomitant]
     Dosage: 81 MG, EACH EVENING
  12. CALCIUM [Concomitant]
     Dosage: 500 MG, BID
  13. IRON [Concomitant]
     Dosage: 90 MG, QD
  14. MAG-OX [Concomitant]
     Dosage: 400 MG, BID
  15. VITAMIN D3 [Concomitant]
     Dosage: 3000 IU, QD
  16. LORTAB [Concomitant]
     Dosage: UNK, OTHER
  17. NIACIN [Concomitant]
     Dosage: 1500 MG, EACH EVENING
  18. ATORVASTATIN [Concomitant]
     Dosage: 40 MG, QD
  19. METAXALONE [Concomitant]
     Dosage: 800 MG, PRN
  20. DOCUSATE SODIUM [Concomitant]
     Dosage: 300 MG, QD
  21. WOMEN^S MULTI [Concomitant]
     Dosage: UNK, QD
  22. CEFAZOLIN [Concomitant]
     Dosage: 10 MG, TID

REACTIONS (4)
  - Sepsis [Unknown]
  - Pain [Recovered/Resolved]
  - Expired drug administered [Unknown]
  - Weight decreased [Unknown]
